FAERS Safety Report 8521900-7 (Version None)
Quarter: 2012Q3

REPORT INFORMATION
  Report Type: 
  Country: None (occurrence: None)
  Receive Date: 20120719
  Receipt Date: 20120419
  Transmission Date: 20120928
  Serious: Yes (Other)
  Sender: FDA-Public Use
  Company Number: PT-ASTRAZENECA-2012SE48974

PATIENT
  Age: 22 Year
  Sex: Female

DRUGS (5)
  1. PROPOFOL [Suspect]
     Indication: ANAESTHESIA PROCEDURE
     Dosage: 200MG
     Route: 042
  2. FENTANYL [Suspect]
     Dosage: 0.1MG
     Route: 042
  3. SEVOFLURANE [Suspect]
     Indication: ANAESTHESIA PROCEDURE
     Route: 065
  4. FENTANYL [Suspect]
     Indication: ANAESTHESIA PROCEDURE
     Dosage: 0.15MG
     Route: 042
  5. CISATRACURIUM BESYLATE [Suspect]
     Indication: ANAESTHESIA PROCEDURE
     Dosage: 6MG
     Route: 065

REACTIONS (3)
  - DYSPNOEA [None]
  - RESPIRATORY DISTRESS [None]
  - TACHYCARDIA [None]
